FAERS Safety Report 8794225 (Version 1)
Quarter: 2012Q4

REPORT INFORMATION
  Report Type: 
  Country: US (occurrence: US)
  Receive Date: 20120917
  Receipt Date: 20120917
  Transmission Date: 20130627
  Serious: Yes (Hospitalization)
  Sender: FDA-Public Use
  Company Number: PHEH2012US017882

PATIENT
  Age: 81 Year
  Sex: Female

DRUGS (13)
  1. TASIGNA [Suspect]
     Indication: CHRONIC MYELOID LEUKAEMIA
     Dosage: 150 mg, BID
     Route: 048
  2. ASPIRIN [Concomitant]
     Dosage: 81 mg, daily
     Route: 048
  3. LOPRESSOR [Concomitant]
     Dosage: 25 mg, daily
     Route: 048
  4. ATACAND [Concomitant]
     Dosage: 16 mg, daily
     Route: 048
  5. PRAVASTATIN [Concomitant]
     Dosage: 50 mg, daily
     Route: 048
  6. PLAVIX [Concomitant]
     Dosage: 75 mg, daily
     Route: 048
  7. COUMADIN [Concomitant]
     Dosage: 4 mg, daily
     Route: 048
  8. SYNTHROID [Concomitant]
     Dosage: 50 mg, daily
     Route: 048
  9. PRILOSEC [Concomitant]
     Dosage: 20 mg, daily
     Route: 048
  10. JANUVIA [Concomitant]
     Dosage: 50 mg, daily
     Route: 048
  11. DIOVAN [Concomitant]
     Dosage: 100 / 12. 5 mg daily
  12. POTASSIUM CHLORIDE [Concomitant]
     Dosage: 10 MEq, daily
  13. CARDIZEM CD [Concomitant]
     Dosage: 120 mg, daily
     Route: 048

REACTIONS (7)
  - Coronary artery restenosis [Unknown]
  - Acute myocardial infarction [Unknown]
  - Atrial fibrillation [Unknown]
  - Bradycardia [Unknown]
  - Pain in jaw [Unknown]
  - Pain in extremity [Unknown]
  - Fatigue [Unknown]
